FAERS Safety Report 22198078 (Version 1)
Quarter: 2023Q2

REPORT INFORMATION
  Report Type: Spontaneous
  Country: US (occurrence: US)
  Receive Date: 20230411
  Receipt Date: 20230411
  Transmission Date: 20230722
  Serious: Yes (Hospitalization, Other)
  Sender: FDA-Public Use
  Company Number: US-PFIZER INC-PV202300065495

PATIENT
  Age: 57 Year
  Sex: Female
  Weight: 136 kg

DRUGS (2)
  1. PANTOPRAZOLE [Suspect]
     Active Substance: PANTOPRAZOLE
     Dosage: TAKE 1 TABLET (40 MG TOTAL) BY MOUTH 1 (ONE) TIME EACH DAY BEFORE BREAKFAST
     Route: 048
     Dates: start: 20230406, end: 20230406
  2. PANTOPRAZOLE [Suspect]
     Active Substance: PANTOPRAZOLE
     Dosage: TAKE 1 TABLET (40 MG TOTAL) BY MOUTH 1 (ONE) TIME EACH DAY BEFORE BREAKFAST
     Route: 048

REACTIONS (1)
  - Chronic left ventricular failure [Unknown]
